FAERS Safety Report 13649909 (Version 1)
Quarter: 2017Q2

REPORT INFORMATION
  Report Type: Report from Study
  Country: None (occurrence: US)
  Receive Date: 20170614
  Receipt Date: 20170614
  Transmission Date: 20170830
  Serious: Yes (Hospitalization, Other)
  Sender: FDA-Public Use
  Company Number: US-ABBVIE-17K-163-1940626-00

PATIENT
  Age: 60 Year
  Sex: Female

DRUGS (3)
  1. VALTREX [Concomitant]
     Active Substance: VALACYCLOVIR HYDROCHLORIDE
     Indication: PRODUCT USED FOR UNKNOWN INDICATION
  2. HUMIRA [Suspect]
     Active Substance: ADALIMUMAB
     Indication: CROHN^S DISEASE
     Route: 058
     Dates: start: 201508
  3. ATENOLOL. [Concomitant]
     Active Substance: ATENOLOL
     Indication: PRODUCT USED FOR UNKNOWN INDICATION

REACTIONS (13)
  - Immunodeficiency [Unknown]
  - Upper respiratory tract infection [Recovering/Resolving]
  - Skin cancer [Recovered/Resolved]
  - Animal scratch [Unknown]
  - Psoriasis [Recovering/Resolving]
  - Gastritis [Recovering/Resolving]
  - Herpes zoster [Recovered/Resolved]
  - Rash erythematous [Unknown]
  - Dermatitis [Unknown]
  - Diarrhoea [Unknown]
  - Conjunctivitis viral [Not Recovered/Not Resolved]
  - Asthma [Recovering/Resolving]
  - Herpes zoster [Recovered/Resolved]

NARRATIVE: CASE EVENT DATE: 201612
